FAERS Safety Report 7260430-X (Version None)
Quarter: 2011Q1

REPORT INFORMATION
  Report Type: 
  Country: None (occurrence: None)
  Receive Date: 20110130
  Receipt Date: 20101117
  Transmission Date: 20110831
  Serious: No
  Sender: FDA-Public Use
  Company Number: US-ABBOTT-10P-163-0686678-00

PATIENT
  Sex: Female
  Weight: 64.014 kg

DRUGS (9)
  1. PRILOSEC [Concomitant]
     Indication: DYSPEPSIA
  2. LIALDA [Concomitant]
     Indication: COLITIS ULCERATIVE
     Dates: start: 20100913
  3. ZYRTEC [Concomitant]
     Indication: HYPERSENSITIVITY
  4. BIOIDENTICAL HORMONE [Concomitant]
     Indication: MENOPAUSE
  5. HUMIRA [Suspect]
     Indication: COLITIS ULCERATIVE
     Dates: start: 20100914
  6. MULTI-VITAMIN [Concomitant]
     Indication: PRODUCT USED FOR UNKNOWN INDICATION
  7. ACIDOPHILUS [Concomitant]
     Indication: PRODUCT USED FOR UNKNOWN INDICATION
  8. CALCIUM WITH MAGNESIUM [Concomitant]
     Indication: PRODUCT USED FOR UNKNOWN INDICATION
  9. SINGULAIR [Concomitant]
     Indication: HYPERSENSITIVITY

REACTIONS (1)
  - COLITIS ULCERATIVE [None]
